FAERS Safety Report 9339463 (Version 1)
Quarter: 2013Q2

REPORT INFORMATION
  Report Type: Spontaneous
  Country: FR (occurrence: FR)
  Receive Date: 20130610
  Receipt Date: 20130610
  Transmission Date: 20140414
  Serious: Yes (Hospitalization)
  Sender: FDA-Public Use
  Company Number: FR-MERCK-1303FRA008030

PATIENT
  Age: 61 Year
  Sex: Male
  Weight: 60 kg

DRUGS (9)
  1. VICTRELIS [Suspect]
     Indication: HEPATITIS C
     Dosage: 4 DF, TID
     Route: 048
     Dates: start: 20130211
  2. REBETOL [Suspect]
     Indication: HEPATITIS C
     Dosage: 400 MG, BID
     Route: 048
     Dates: start: 20130114
  3. VIRAFERONPEG [Suspect]
     Indication: HEPATITIS C
     Dosage: 90 MICROGRAM, QW
     Route: 058
     Dates: start: 20130114
  4. PLAVIX [Concomitant]
     Indication: ARTERIAL DISORDER
     Dosage: 1 DF, QD
  5. KARDEGIC [Concomitant]
     Indication: ARTERIAL DISORDER
     Dosage: 1 DF, QD
  6. CARDENSIEL [Concomitant]
     Indication: HYPERTENSION
     Dosage: 2 DF, QD
  7. CRESTOR [Concomitant]
     Indication: HYPERTENSION
     Dosage: 1 DF, QD
  8. AMLOR [Concomitant]
     Indication: HYPERTENSION
     Dosage: 1 DF, QD
  9. INIPOMP [Concomitant]
     Indication: DYSPEPSIA
     Dosage: 1 DF, QD

REACTIONS (5)
  - Hyponatraemia [Recovered/Resolved]
  - Confusional state [Recovered/Resolved]
  - Hyponatraemia [Unknown]
  - Confusional state [Unknown]
  - Vomiting [Unknown]
